FAERS Safety Report 15396722 (Version 2)
Quarter: 2018Q4

REPORT INFORMATION
  Report Type: Spontaneous
  Country: US (occurrence: US)
  Receive Date: 20180918
  Receipt Date: 20181031
  Transmission Date: 20190204
  Serious: No
  Sender: FDA-Public Use
  Company Number: US-ASTRAZENECA-2018SF15915

PATIENT
  Age: 19941 Day
  Sex: Female
  Weight: 81.6 kg

DRUGS (1)
  1. BYDUREON [Suspect]
     Active Substance: EXENATIDE
     Route: 058

REACTIONS (3)
  - Device leakage [Unknown]
  - Injection site extravasation [Unknown]
  - Product dose omission [Unknown]

NARRATIVE: CASE EVENT DATE: 20180830
